FAERS Safety Report 7518041-4 (Version None)
Quarter: 2011Q2

REPORT INFORMATION
  Report Type: 
  Country: None (occurrence: None)
  Receive Date: 20110602
  Receipt Date: 20110524
  Transmission Date: 20111010
  Serious: Yes (Other)
  Sender: FDA-Public Use
  Company Number: US-JNJFOC-20110300193

PATIENT
  Sex: Female
  Weight: 63.96 kg

DRUGS (2)
  1. XANAX [Concomitant]
     Indication: PANIC ATTACK
     Route: 065
  2. NUCYNTA [Suspect]
     Indication: ANALGESIC THERAPY
     Dosage: TOOK ONE TABLET AND THEN WAITED 1 HOUR AND TOOK A SECOND TABLET
     Route: 048
     Dates: start: 20110101, end: 20110101

REACTIONS (11)
  - AMENORRHOEA [None]
  - DEPRESSION [None]
  - ANXIETY [None]
  - FEELING ABNORMAL [None]
  - CRYING [None]
  - CARDIAC FAILURE [None]
  - DELUSION [None]
  - DISTURBANCE IN SOCIAL BEHAVIOUR [None]
  - TREMOR [None]
  - IMPAIRED DRIVING ABILITY [None]
  - EUPHORIC MOOD [None]
